FAERS Safety Report 4905416-2 (Version None)
Quarter: 2006Q1

REPORT INFORMATION
  Report Type: 
  Country: None (occurrence: None)
  Receive Date: 20060208
  Receipt Date: 20060129
  Transmission Date: 20060701
  Serious: Yes (Death)
  Sender: FDA-Public Use
  Company Number: EG-MERCK-0602USA00261

PATIENT
  Age: 68 Year
  Sex: Female

DRUGS (2)
  1. PRIMAXIN [Suspect]
     Indication: RESPIRATORY FAILURE
     Route: 042
     Dates: start: 20051202, end: 20051205
  2. CIPROFLOXACIN [Concomitant]
     Indication: RESPIRATORY FAILURE
     Route: 065
     Dates: start: 20051101, end: 20051201

REACTIONS (1)
  - DEATH [None]
